FAERS Safety Report 6375454-4 (Version None)
Quarter: 2009Q3

REPORT INFORMATION
  Report Type: 
  Country: None (occurrence: None)
  Receive Date: 20090917
  Receipt Date: 20090917
  Transmission Date: 20100115
  Serious: Yes (Other)
  Sender: FDA-Public Use
  Company Number: None

PATIENT
  Age: 18 Year
  Sex: Female
  Weight: 43.0917 kg

DRUGS (1)
  1. NUVARING [Suspect]
     Indication: CONTRACEPTION
     Dosage: ONCE MONTHLY VAG
     Route: 067
     Dates: start: 20080801, end: 20081201

REACTIONS (6)
  - BLADDER IRRITATION [None]
  - CYSTITIS NONINFECTIVE [None]
  - DYSPAREUNIA [None]
  - LOSS OF LIBIDO [None]
  - PAIN [None]
  - VULVOVAGINAL DRYNESS [None]
